FAERS Safety Report 4826862-1 (Version None)
Quarter: 2005Q4

REPORT INFORMATION
  Report Type: 
  Country: None (occurrence: None)
  Receive Date: 20051114
  Receipt Date: 20050927
  Transmission Date: 20060501
  Serious: Yes (Other)
  Sender: FDA-Public Use
  Company Number: US-AMGEN-KDL152379

PATIENT
  Sex: Female

DRUGS (4)
  1. ENBREL [Suspect]
     Indication: RHEUMATOID ARTHRITIS
     Route: 058
     Dates: start: 20041101
  2. FOSAMAX [Concomitant]
     Dates: start: 20021101
  3. XANAX [Concomitant]
     Dates: start: 20020501
  4. RESTORIL [Concomitant]
     Dates: start: 20040501

REACTIONS (5)
  - ARTHRALGIA [None]
  - HEPATIC ENZYME INCREASED [None]
  - HEPATITIS [None]
  - LIVER DISORDER [None]
  - MUSCULOSKELETAL STIFFNESS [None]
